FAERS Safety Report 9654456 (Version 2)
Quarter: 2013Q4

REPORT INFORMATION
  Report Type: Spontaneous
  Country: DE (occurrence: DE)
  Receive Date: 20131029
  Receipt Date: 20131029
  Transmission Date: 20140711
  Serious: Yes (Other)
  Sender: FDA-Public Use
  Company Number: CHNY2013DE002001

PATIENT
  Age: 42 Year
  Sex: Female
  Weight: 90 kg

DRUGS (2)
  1. SCOPODERM TTS [Suspect]
     Indication: MOTION SICKNESS
     Dosage: 1 DF, UNK
     Route: 062
     Dates: start: 20130117, end: 20130119
  2. DIAZEPAM [Concomitant]
     Dosage: 5 DRP, UNK
     Dates: start: 20130115

REACTIONS (6)
  - Visual impairment [Recovered/Resolved]
  - Accommodation disorder [Recovered/Resolved]
  - Malaise [Recovered/Resolved]
  - Photophobia [Recovered/Resolved]
  - Thirst [Recovered/Resolved]
  - Dry mouth [Recovered/Resolved]
